FAERS Safety Report 26000003 (Version 1)
Quarter: 2025Q4

REPORT INFORMATION
  Report Type: Spontaneous
  Country: GB (occurrence: GB)
  Receive Date: 20251105
  Receipt Date: 20251105
  Transmission Date: 20260118
  Serious: Yes (Other)
  Sender: RANBAXY
  Company Number: GB-MHRA-TPP19265578C7743505YC1760776420759

PATIENT
  Age: 45 Year
  Sex: Female
  Weight: 64 kg

DRUGS (11)
  1. CODEINE [Suspect]
     Active Substance: CODEINE
     Indication: Ill-defined disorder
     Dosage: UNK
     Route: 065
     Dates: start: 20250920
  2. LOPERAMIDE [Concomitant]
     Active Substance: LOPERAMIDE
     Indication: Ill-defined disorder
     Dosage: TAKE 2MG (1 TABLET) UP TO 4 TIMES A DAY FOR 14 ...
     Route: 065
     Dates: start: 20250920
  3. ONDANSETRON [Concomitant]
     Active Substance: ONDANSETRON
     Indication: Ill-defined disorder
     Dosage: TAKE ONE TWICE DAILY WHEN REQUIRED
     Route: 065
     Dates: start: 20251001, end: 20251006
  4. ENOXAPARIN [Concomitant]
     Active Substance: ENOXAPARIN
     Indication: Ill-defined disorder
     Dosage: INHIXA 40MG OD - 28 DAYS POST OP - LAST DOSE 21...
     Route: 065
     Dates: start: 20251001
  5. OMEPRAZOLE [Concomitant]
     Active Substance: OMEPRAZOLE
     Indication: Ill-defined disorder
     Dosage: 40MG OD - TO REVIEW
     Route: 065
     Dates: start: 20251001
  6. FEXOFENADINE [Concomitant]
     Active Substance: FEXOFENADINE HYDROCHLORIDE
     Indication: Ill-defined disorder
     Dosage: ONE OR TWO TO BE TAKEN EACH DAY
     Route: 065
     Dates: start: 20240911
  7. DYMISTA [Concomitant]
     Active Substance: AZELASTINE HYDROCHLORIDE\FLUTICASONE PROPIONATE
     Indication: Ill-defined disorder
     Dosage: ONE PUFF TWICE DAILY
     Route: 065
     Dates: start: 20250520
  8. CODEINE PHOSPHATE [Concomitant]
     Active Substance: CODEINE PHOSPHATE
     Indication: Ill-defined disorder
     Dosage: TAKE ONE 4 TIMES/DAY
     Route: 065
     Dates: start: 20250814
  9. CLINIPEEL [Concomitant]
     Indication: Ill-defined disorder
     Dosage: USE AS DIRECTED
     Route: 065
     Dates: start: 20250930
  10. WELLAND AURA PLUS [Concomitant]
     Indication: Ill-defined disorder
     Dosage: USE AS DIRECTED
     Route: 065
     Dates: start: 20250930
  11. CARBOHYDRATES\FATTY ACIDS\MINERALS\PROTEIN\VITAMINS [Concomitant]
     Active Substance: CARBOHYDRATES\FATTY ACIDS\MINERALS\PROTEIN\VITAMINS
     Indication: Ill-defined disorder
     Dosage: ONE TWICE A DAY
     Route: 065
     Dates: start: 20251001

REACTIONS (2)
  - Nausea [Recovered/Resolved]
  - Emotional disorder [Unknown]
